FAERS Safety Report 21391525 (Version 1)
Quarter: 2022Q3

REPORT INFORMATION
  Report Type: Spontaneous
  Country: JP (occurrence: JP)
  Receive Date: 20220929
  Receipt Date: 20220929
  Transmission Date: 20221026
  Serious: Yes (Other)
  Sender: FDA-Public Use
  Company Number: JP-PFIZER INC-PV202200067840

PATIENT
  Age: 70 Year
  Sex: Female
  Weight: 53.2 kg

DRUGS (3)
  1. SULFASALAZINE [Suspect]
     Active Substance: SULFASALAZINE
     Indication: Colitis ulcerative
     Dosage: 1000 MG, 3X/DAY
     Route: 048
     Dates: start: 20070101, end: 20211102
  2. SULFASALAZINE [Suspect]
     Active Substance: SULFASALAZINE
     Dosage: UNK
     Dates: start: 202206
  3. VESICARE [Concomitant]
     Active Substance: SOLIFENACIN SUCCINATE
     Dosage: UNK
     Route: 048
     Dates: start: 20210301, end: 20211102

REACTIONS (9)
  - Pancytopenia [Recovered/Resolved]
  - Mean cell volume increased [Recovering/Resolving]
  - Off label use [Unknown]
  - White blood cell count decreased [Recovered/Resolved]
  - Platelet count decreased [Recovered/Resolved]
  - Haemoglobin decreased [Recovering/Resolving]
  - Folate deficiency [Recovering/Resolving]
  - Neutrophil count decreased [Unknown]
  - Anaemia megaloblastic [Unknown]

NARRATIVE: CASE EVENT DATE: 20070101
